FAERS Safety Report 23720147 (Version 1)
Quarter: 2024Q2

REPORT INFORMATION
  Report Type: Spontaneous
  Country: DE (occurrence: DE)
  Receive Date: 20240408
  Receipt Date: 20240408
  Transmission Date: 20240716
  Serious: Yes (Other)
  Sender: FDA-Public Use
  Company Number: DE-SCHWABE-2024022601

PATIENT
  Age: 70 Year
  Sex: Male

DRUGS (2)
  1. RAMIPRIL [Suspect]
     Active Substance: RAMIPRIL
     Indication: Hypertension
     Route: 065
     Dates: start: 202308, end: 20240114
  2. CRATAEGUS [Suspect]
     Active Substance: HAWTHORN LEAF WITH FLOWER
     Indication: Hypertension
     Dosage: C30 GLOBULES, 10 GLOBULES ONCE
     Route: 048
     Dates: start: 20240202, end: 20240227

REACTIONS (1)
  - Bradycardia [Recovered/Resolved]

NARRATIVE: CASE EVENT DATE: 20240202
